FAERS Safety Report 23258776 (Version 1)
Quarter: 2023Q4

REPORT INFORMATION
  Report Type: Spontaneous
  Country: US (occurrence: None)
  Receive Date: 20231202
  Receipt Date: 20231202
  Transmission Date: 20240109
  Serious: Yes (Hospitalization)
  Sender: FDA-Public Use
  Company Number: None

PATIENT
  Age: 61 Year
  Sex: Male
  Weight: 96 kg

DRUGS (1)
  1. GADODIAMIDE [Suspect]
     Active Substance: GADODIAMIDE
     Dates: start: 20231102, end: 20231102

REACTIONS (4)
  - Nasopharyngitis [None]
  - Ear pain [None]
  - Vomiting [None]
  - Peripheral coldness [None]

NARRATIVE: CASE EVENT DATE: 20231102
